FAERS Safety Report 5885540-0 (Version None)
Quarter: 2008Q3

REPORT INFORMATION
  Report Type: 
  Country: None (occurrence: None)
  Receive Date: 20080916
  Receipt Date: 20080904
  Transmission Date: 20090109
  Serious: No
  Sender: FDA-Public Use
  Company Number: US-B.I. PHARMACEUTICALS,INC./RIDGEFIELD-2008-BP-14023BP

PATIENT
  Sex: Female

DRUGS (5)
  1. SPIRIVA [Suspect]
     Indication: CHRONIC OBSTRUCTIVE PULMONARY DISEASE
     Dosage: 18MCG
     Route: 055
     Dates: start: 20080829
  2. SPIRIVA [Suspect]
     Indication: EMPHYSEMA
  3. PREDNISONE TAB [Concomitant]
     Dosage: 30MG
     Route: 048
  4. LYRICA [Concomitant]
     Dosage: 3MG
     Route: 048
  5. PREVACID [Concomitant]
     Route: 048

REACTIONS (1)
  - DIZZINESS [None]
